FAERS Safety Report 11755241 (Version 2)
Quarter: 2015Q4

REPORT INFORMATION
  Report Type: Spontaneous
  Country: NL (occurrence: NL)
  Receive Date: 20151119
  Receipt Date: 20151211
  Transmission Date: 20160304
  Serious: Yes (Hospitalization, Other)
  Sender: FDA-Public Use
  Company Number: NL-B.I. PHARMACEUTICALS,INC./RIDGEFIELD-2015-BI-63890NL

PATIENT
  Age: 30 Year
  Sex: Female
  Weight: 62 kg

DRUGS (9)
  1. GILOTRIF [Suspect]
     Active Substance: AFATINIB
     Indication: METASTASES TO BONE
     Dosage: 40 MG
     Route: 065
     Dates: start: 20150421
  2. GILOTRIF [Suspect]
     Active Substance: AFATINIB
     Indication: METASTASES TO MENINGES
  3. CALCIUMCARB [Concomitant]
     Indication: PRODUCT USED FOR UNKNOWN INDICATION
     Dosage: DOSE PER APPLICATION:1.25/800, DAILY DOSE:1.25/800
     Route: 065
  4. DALTEPARINE [Concomitant]
     Indication: PRODUCT USED FOR UNKNOWN INDICATION
     Dosage: 2500E=0.2 ML FLUID FOR INJECTION WWSP
     Route: 065
  5. ETORICOXIB [Concomitant]
     Active Substance: ETORICOXIB
     Indication: PRODUCT USED FOR UNKNOWN INDICATION
     Dosage: 90 MG
     Route: 065
  6. GILOTRIF [Suspect]
     Active Substance: AFATINIB
     Indication: METASTASES TO LIVER
     Dosage: 40 MG
     Route: 065
  7. GILOTRIF [Suspect]
     Active Substance: AFATINIB
     Indication: NON-SMALL CELL LUNG CANCER
  8. GILOTRIF [Suspect]
     Active Substance: AFATINIB
     Indication: GENE MUTATION
  9. TEMAZEPAM. [Concomitant]
     Active Substance: TEMAZEPAM
     Indication: INSOMNIA
     Dosage: 10 MG
     Route: 065

REACTIONS (10)
  - Metastases to central nervous system [Not Recovered/Not Resolved]
  - Metastases to central nervous system [Not Recovered/Not Resolved]
  - Diarrhoea [Not Recovered/Not Resolved]
  - Spinal pain [Unknown]
  - Alopecia [Not Recovered/Not Resolved]
  - Nausea [Recovered/Resolved with Sequelae]
  - Metastatic pain [Recovered/Resolved with Sequelae]
  - Metastases to liver [Not Recovered/Not Resolved]
  - Nail bed infection [Recovered/Resolved with Sequelae]
  - Skin disorder [Not Recovered/Not Resolved]

NARRATIVE: CASE EVENT DATE: 201506
